FAERS Safety Report 7577414-4 (Version None)
Quarter: 2011Q2

REPORT INFORMATION
  Report Type: 
  Country: None (occurrence: None)
  Receive Date: 20110628
  Receipt Date: 20110525
  Transmission Date: 20111010
  Serious: No
  Sender: FDA-Public Use
  Company Number: US-BAYER-2011-046967

PATIENT
  Age: 70 Year
  Sex: Female
  Weight: 68 kg

DRUGS (3)
  1. 2 MEDICINES FOR MY OBSESSIVE COMPULSIVE [Concomitant]
  2. 3 TRANQUILIZERS [Concomitant]
  3. ALEVE (CAPLET) [Suspect]
     Route: 048

REACTIONS (1)
  - DIARRHOEA [None]
